FAERS Safety Report 7631875-0 (Version None)
Quarter: 2011Q3

REPORT INFORMATION
  Report Type: 
  Country: None (occurrence: None)
  Receive Date: 20110725
  Receipt Date: 20110426
  Transmission Date: 20111222
  Serious: No
  Sender: FDA-Public Use
  Company Number: US-BRISTOL-MYERS SQUIBB COMPANY-15696727

PATIENT
  Age: 79 Year
  Sex: Female
  Weight: 48 kg

DRUGS (2)
  1. COUMADIN [Suspect]
  2. PLAVIX [Suspect]

REACTIONS (2)
  - PRURITUS [None]
  - EPISTAXIS [None]
